FAERS Safety Report 9228853 (Version 5)
Quarter: 2015Q2

REPORT INFORMATION
  Report Type: Spontaneous
  Country: US (occurrence: US)
  Receive Date: 20130412
  Receipt Date: 20150423
  Transmission Date: 20150821
  Serious: No
  Sender: FDA-Public Use
  Company Number: US-009507513-1304USA003904

PATIENT
  Sex: Male

DRUGS (2)
  1. PROPECIA [Suspect]
     Active Substance: FINASTERIDE
     Indication: ANDROGENETIC ALOPECIA
     Dosage: 1 MG, UNK
     Route: 048
     Dates: start: 20000112
  2. FINASTERIDE. [Suspect]
     Active Substance: FINASTERIDE
     Indication: ANDROGENETIC ALOPECIA
     Dosage: 5 MG, UNK
     Route: 048
     Dates: start: 20090626, end: 201007

REACTIONS (29)
  - Vision blurred [Unknown]
  - Balance disorder [Unknown]
  - Road traffic accident [Unknown]
  - Hypoaesthesia [Unknown]
  - Mental impairment [Unknown]
  - Actinic keratosis [Unknown]
  - Blood cholesterol increased [Unknown]
  - Sexual dysfunction [Not Recovered/Not Resolved]
  - Androgen deficiency [Unknown]
  - Rib fracture [Unknown]
  - Laceration [Unknown]
  - Cognitive disorder [Unknown]
  - Panic disorder [Unknown]
  - Cognitive disorder [Not Recovered/Not Resolved]
  - Tinnitus [Unknown]
  - Anxiety [Unknown]
  - Drug administration error [Unknown]
  - Anogenital warts [Unknown]
  - Depression [Not Recovered/Not Resolved]
  - Loss of libido [Unknown]
  - Thyroid disorder [Unknown]
  - Dyshidrotic eczema [Unknown]
  - Joint dislocation [Unknown]
  - Apathy [Unknown]
  - Onychomycosis [Unknown]
  - Folliculitis [Unknown]
  - Lethargy [Unknown]
  - Sensory disturbance [Unknown]
  - Anogenital warts [Recovered/Resolved]

NARRATIVE: CASE EVENT DATE: 20020114
